FAERS Safety Report 6379333-8 (Version None)
Quarter: 2009Q3

REPORT INFORMATION
  Report Type: 
  Country: None (occurrence: None)
  Receive Date: 20090928
  Receipt Date: 20090915
  Transmission Date: 20100115
  Serious: Yes (Hospitalization)
  Sender: FDA-Public Use
  Company Number: US-AMGEN-US364819

PATIENT
  Sex: Male
  Weight: 101.4 kg

DRUGS (4)
  1. VECTIBIX [Suspect]
     Indication: OESOPHAGEAL CARCINOMA
     Dates: start: 20090728
  2. CISPLATIN [Suspect]
     Dates: start: 20090728
  3. DOCETAXEL [Suspect]
     Dates: start: 20090728
  4. RADIATION THERAPY [Suspect]
     Dates: start: 20090831

REACTIONS (8)
  - DECREASED APPETITE [None]
  - DEHYDRATION [None]
  - DYSPHAGIA [None]
  - FATIGUE [None]
  - HAEMOGLOBIN DECREASED [None]
  - HYPOMAGNESAEMIA [None]
  - HYPONATRAEMIA [None]
  - MUCOSAL INFLAMMATION [None]
